FAERS Safety Report 5200134-8 (Version None)
Quarter: 2007Q1

REPORT INFORMATION
  Report Type: 
  Country: None (occurrence: None)
  Receive Date: 20070103
  Receipt Date: 20061221
  Transmission Date: 20070707
  Serious: Yes (Death)
  Sender: FDA-Public Use
  Company Number: 2006S1000306

PATIENT

DRUGS (1)
  1. CUBICIN [Suspect]

REACTIONS (2)
  - INFECTION [None]
  - INTERNATIONAL NORMALISED RATIO INCREASED [None]
